FAERS Safety Report 4913072-2 (Version None)
Quarter: 2006Q1

REPORT INFORMATION
  Report Type: 
  Country: None (occurrence: None)
  Receive Date: 20060215
  Receipt Date: 20060206
  Transmission Date: 20060701
  Serious: Yes (Other)
  Sender: FDA-Public Use
  Company Number: JP-ABBOTT-06P-087-0324597-00

PATIENT
  Age: 74 Year
  Sex: Female

DRUGS (12)
  1. CLARITHROMYCIN [Suspect]
     Indication: HELICOBACTER INFECTION
     Route: 048
     Dates: start: 20030730, end: 20030806
  2. OMEPRAZOLE [Suspect]
     Indication: HELICOBACTER INFECTION
     Route: 048
     Dates: start: 20030730, end: 20030806
  3. AMOXICILLIN [Suspect]
     Indication: HELICOBACTER INFECTION
     Route: 048
     Dates: start: 20030730, end: 20030806
  4. MOVELAT [Concomitant]
     Indication: OSTEOARTHRITIS
  5. MOVELAT [Concomitant]
     Indication: SPINAL OSTEOARTHRITIS
  6. KETOPROFEN [Concomitant]
     Indication: OSTEOARTHRITIS
     Route: 062
  7. KETOPROFEN [Concomitant]
     Indication: SPINAL OSTEOARTHRITIS
  8. AMLODIPINE BESYLATE [Concomitant]
     Indication: HYPERTENSION
  9. POTASSIUM CHLORIDE [Concomitant]
     Indication: MINERAL SUPPLEMENTATION
  10. ISOSORBIDE MONONITRATE [Concomitant]
     Indication: HYPERTENSION
  11. NICORANDIL [Concomitant]
     Indication: ARRHYTHMIA
  12. BEZAFIBRATE [Concomitant]
     Indication: DIABETES MELLITUS

REACTIONS (1)
  - GASTRIC CANCER [None]
